FAERS Safety Report 15962514 (Version 2)
Quarter: 2019Q1

REPORT INFORMATION
  Report Type: Spontaneous
  Country: JP (occurrence: JP)
  Receive Date: 20190214
  Receipt Date: 20190305
  Transmission Date: 20190417
  Serious: Yes (Death, Hospitalization)
  Sender: FDA-Public Use
  Company Number: JP-BIOGEN-2019BI00692954

PATIENT
  Age: 69 Year
  Sex: Male
  Weight: 63 kg

DRUGS (5)
  1. KEYTRUDA [Suspect]
     Active Substance: PEMBROLIZUMAB
     Route: 050
     Dates: start: 20190107, end: 20190127
  2. HEPARIN [Concomitant]
     Active Substance: HEPARIN SODIUM
     Dosage: PERSISTENT
     Dates: start: 20190127, end: 20190201
  3. KEYTRUDA [Suspect]
     Active Substance: PEMBROLIZUMAB
     Indication: LUNG ADENOCARCINOMA
     Route: 050
     Dates: start: 20181211
  4. TEGRETOL [Concomitant]
     Active Substance: CARBAMAZEPINE
     Route: 050
  5. AVONEX [Suspect]
     Active Substance: INTERFERON BETA-1A
     Indication: MULTIPLE SCLEROSIS
     Route: 050
     Dates: start: 20150110, end: 20190127

REACTIONS (2)
  - Lung adenocarcinoma [Fatal]
  - Cerebral infarction [Fatal]

NARRATIVE: CASE EVENT DATE: 20181030
